FAERS Safety Report 4549088-8 (Version None)
Quarter: 2004Q4

REPORT INFORMATION
  Report Type: 
  Country: None (occurrence: None)
  Receive Date: 20041227
  Receipt Date: 20041015
  Transmission Date: 20050328
  Serious: No
  Sender: FDA-Public Use
  Company Number: 04P-163-0277665-00

PATIENT
  Age: 62 Year
  Sex: Female
  Weight: 76.2043 kg

DRUGS (7)
  1. HUMIRA [Suspect]
     Indication: RHEUMATOID ARTHRITIS
     Dosage: 40 MG, 1 IN 2 WK, SUBCUTANEOUS
     Route: 058
     Dates: start: 20040528
  2. METHOTREXATE [Suspect]
     Dosage: 6 TABLET, 1 IN 1 WK, PER ORAL
     Route: 048
  3. FOLIC ACID [Concomitant]
  4. PIROXICAM [Concomitant]
  5. ALENDRONATE SODIUM [Concomitant]
  6. CALCIUM GLUCONATE [Concomitant]
  7. HYDROCHLOROTHIAZIDE [Concomitant]

REACTIONS (3)
  - COUGH [None]
  - HERPES SIMPLEX [None]
  - LIVER FUNCTION TEST ABNORMAL [None]
